FAERS Safety Report 4681197-5 (Version None)
Quarter: 2005Q2

REPORT INFORMATION
  Report Type: 
  Country: None (occurrence: None)
  Receive Date: 20050601
  Receipt Date: 20050506
  Transmission Date: 20051028
  Serious: Yes (Other)
  Sender: FDA-Public Use
  Company Number: 2005-00958

PATIENT
  Sex: Male

DRUGS (2)
  1. INTEGRILIN [Suspect]
     Dosage: SEE IMAGE
     Route: 040
     Dates: start: 20050502
  2. PLAVIX [Concomitant]

REACTIONS (3)
  - ACCIDENTAL OVERDOSE [None]
  - HEADACHE [None]
  - MEDICATION ERROR [None]
